FAERS Safety Report 7159648-6 (Version None)
Quarter: 2010Q4

REPORT INFORMATION
  Report Type: 
  Country: None (occurrence: None)
  Receive Date: 20101214
  Receipt Date: 20101026
  Transmission Date: 20110411
  Serious: No
  Sender: FDA-Public Use
  Company Number: US-ASTRAZENECA-2010SE50786

PATIENT
  Sex: Male

DRUGS (2)
  1. CRESTOR [Suspect]
     Route: 048
     Dates: start: 20090101, end: 20100101
  2. CRESTOR [Suspect]
     Route: 048
     Dates: start: 20100101, end: 20100101

REACTIONS (3)
  - CARDIAC DISCOMFORT [None]
  - HYPERHIDROSIS [None]
  - MUSCULAR WEAKNESS [None]
